FAERS Safety Report 9282463 (Version 1)
Quarter: 2013Q2

REPORT INFORMATION
  Report Type: Spontaneous
  Country: US (occurrence: None)
  Receive Date: 20130509
  Receipt Date: 20130509
  Transmission Date: 20140414
  Serious: No
  Sender: FDA-Public Use
  Company Number: None

PATIENT
  Age: 35 Year
  Sex: Female
  Weight: 99.79 kg

DRUGS (4)
  1. DIVALPROEX [Suspect]
     Indication: AFFECTIVE DISORDER
     Dates: start: 20130315, end: 20130508
  2. DIVALPROEX [Suspect]
     Indication: MAJOR DEPRESSION
     Dates: start: 20130315, end: 20130508
  3. DIVALPROEX [Suspect]
     Indication: PANIC REACTION
     Dates: start: 20130315, end: 20130508
  4. DIVALPROEX [Suspect]
     Indication: ANXIETY
     Dates: start: 20130315, end: 20130508

REACTIONS (2)
  - Product substitution issue [None]
  - Drug ineffective [None]
